FAERS Safety Report 5866823-7 (Version None)
Quarter: 2008Q3

REPORT INFORMATION
  Report Type: 
  Country: None (occurrence: None)
  Receive Date: 20080902
  Receipt Date: 20080828
  Transmission Date: 20090109
  Serious: Yes (Hospitalization, Disabling)
  Sender: FDA-Public Use
  Company Number: PHHO2004DE12082

PATIENT
  Sex: Female
  Weight: 55 kg

DRUGS (4)
  1. DIOVAN T30230+TAB+HY [Suspect]
     Dosage: 160 MG, QD
     Dates: start: 20040712
  2. PANTOZOL [Concomitant]
     Indication: GASTROOESOPHAGEAL REFLUX DISEASE
  3. ASPIRIN [Concomitant]
     Indication: PROPHYLAXIS
  4. ISCOVER [Concomitant]
     Indication: PROPHYLAXIS

REACTIONS (6)
  - AMPUTATION [None]
  - ARTERIAL BYPASS OPERATION [None]
  - DISEASE PROGRESSION [None]
  - EMBOLISM [None]
  - FALL [None]
  - HUMERUS FRACTURE [None]
